FAERS Safety Report 9421281 (Version 1)
Quarter: 2013Q3

REPORT INFORMATION
  Report Type: Spontaneous
  Country: US (occurrence: US)
  Receive Date: 20130725
  Receipt Date: 20130725
  Transmission Date: 20140515
  Serious: Yes (Hospitalization)
  Sender: FDA-Public Use
  Company Number: US-ROXANE LABORATORIES, INC.-2013-RO-01216RO

PATIENT
  Age: 75 Year
  Sex: Male

DRUGS (2)
  1. LITHIUM CARBONATE [Suspect]
     Indication: HYPOMANIA
     Route: 048
  2. LITHIUM CARBONATE [Suspect]
     Dosage: 600 MG
     Route: 048
     Dates: start: 201306, end: 20130717

REACTIONS (5)
  - Parkinsonism [Not Recovered/Not Resolved]
  - Abasia [Recovered/Resolved]
  - Tremor [Recovered/Resolved]
  - Musculoskeletal stiffness [Not Recovered/Not Resolved]
  - Muscle rigidity [Not Recovered/Not Resolved]
